FAERS Safety Report 6594427-X (Version None)
Quarter: 2010Q1

REPORT INFORMATION
  Report Type: 
  Country: None (occurrence: None)
  Receive Date: 20100222
  Receipt Date: 20100216
  Transmission Date: 20100710
  Serious: Yes (Other)
  Sender: FDA-Public Use
  Company Number: B0634979A

PATIENT
  Sex: Male
  Weight: 92 kg

DRUGS (1)
  1. AUGMENTIN [Suspect]
     Dosage: 2G PER DAY
     Route: 065
     Dates: start: 20100115, end: 20100118

REACTIONS (4)
  - DIARRHOEA [None]
  - LARYNGEAL OEDEMA [None]
  - PRURITUS [None]
  - RASH [None]
